FAERS Safety Report 19822972 (Version 1)
Quarter: 2021Q3

REPORT INFORMATION
  Report Type: Spontaneous
  Country: US (occurrence: US)
  Receive Date: 20210913
  Receipt Date: 20210913
  Transmission Date: 20211014
  Serious: Yes (Other)
  Sender: FDA-Public Use
  Company Number: US-STRIDES ARCOLAB LIMITED-2021SP025934

PATIENT
  Age: 23 Year
  Sex: Male

DRUGS (21)
  1. IBUPROFEN. [Suspect]
     Active Substance: IBUPROFEN
     Indication: CANCER PAIN
     Dosage: UNK
     Route: 065
  2. GABAPENTIN. [Suspect]
     Active Substance: GABAPENTIN
     Indication: CANCER PAIN
     Dosage: UNK
     Route: 065
  3. AMITRIPTYLINE [Suspect]
     Active Substance: AMITRIPTYLINE
     Indication: CANCER PAIN
     Dosage: UNK
     Route: 065
  4. PREGABALIN. [Suspect]
     Active Substance: PREGABALIN
     Indication: PENILE PAIN
  5. TRAMADOL. [Suspect]
     Active Substance: TRAMADOL
     Indication: NEURALGIA
  6. IBUPROFEN. [Suspect]
     Active Substance: IBUPROFEN
     Indication: NEURALGIA
  7. GABAPENTIN. [Suspect]
     Active Substance: GABAPENTIN
     Indication: NEURALGIA
  8. OXYCODONE [Suspect]
     Active Substance: OXYCODONE
     Indication: NEURALGIA
  9. LIDOCAINE. [Suspect]
     Active Substance: LIDOCAINE
     Indication: PENILE PAIN
  10. IBUPROFEN. [Suspect]
     Active Substance: IBUPROFEN
     Indication: PENILE PAIN
  11. AMITRIPTYLINE [Suspect]
     Active Substance: AMITRIPTYLINE
     Indication: NEURALGIA
  12. GABAPENTIN. [Suspect]
     Active Substance: GABAPENTIN
     Indication: PENILE PAIN
  13. PREGABALIN. [Suspect]
     Active Substance: PREGABALIN
     Indication: NEURALGIA
  14. TRAMADOL. [Suspect]
     Active Substance: TRAMADOL
     Indication: CANCER PAIN
     Dosage: UNK
     Route: 065
  15. OXYCODONE [Suspect]
     Active Substance: OXYCODONE
     Indication: CANCER PAIN
     Dosage: UNK
     Route: 065
  16. OXYCODONE [Suspect]
     Active Substance: OXYCODONE
     Indication: PENILE PAIN
  17. LIDOCAINE. [Suspect]
     Active Substance: LIDOCAINE
     Indication: CANCER PAIN
     Dosage: UNK
     Route: 065
  18. PREGABALIN. [Suspect]
     Active Substance: PREGABALIN
     Indication: CANCER PAIN
     Dosage: UNK
     Route: 065
  19. TRAMADOL. [Suspect]
     Active Substance: TRAMADOL
     Indication: PENILE PAIN
  20. LIDOCAINE. [Suspect]
     Active Substance: LIDOCAINE
     Indication: NEURALGIA
  21. AMITRIPTYLINE [Suspect]
     Active Substance: AMITRIPTYLINE
     Indication: PENILE PAIN

REACTIONS (2)
  - Treatment failure [Unknown]
  - Off label use [Unknown]
